FAERS Safety Report 24887983 (Version 2)
Quarter: 2025Q1

REPORT INFORMATION
  Report Type: Report from Study
  Country: US (occurrence: US)
  Receive Date: 20250127
  Receipt Date: 20250203
  Transmission Date: 20250409
  Serious: Yes (Other)
  Sender: ABBVIE
  Company Number: US-ABBVIE-6102055

PATIENT
  Sex: Female

DRUGS (2)
  1. ARMOUR THYROID [Suspect]
     Active Substance: THYROID, PORCINE
     Indication: Product used for unknown indication
     Dosage: 1 TAB 90MG AND 1 TAB 15MG ONCE A DAY
     Route: 048
  2. ARMOUR THYROID [Suspect]
     Active Substance: THYROID, PORCINE
     Indication: Product used for unknown indication
     Dosage: 1 TAB 90MG AND 1 TAB 15MG ONCE A DAY
     Route: 048

REACTIONS (2)
  - Cholecystectomy [Unknown]
  - Pancreatolithiasis [Unknown]
